FAERS Safety Report 25317832 (Version 2)
Quarter: 2025Q2

REPORT INFORMATION
  Report Type: Spontaneous
  Country: AT (occurrence: AT)
  Receive Date: 20250515
  Receipt Date: 20250522
  Transmission Date: 20250717
  Serious: Yes (Death, Hospitalization, Other)
  Sender: BRISTOL-MYERS SQUIBB COMPANY
  Company Number: None

PATIENT
  Age: 81 Year
  Sex: Male

DRUGS (1)
  1. OPDIVO [Suspect]
     Active Substance: NIVOLUMAB
     Indication: Malignant melanoma
     Dates: start: 20250217

REACTIONS (7)
  - Myositis [Fatal]
  - Myocarditis [Fatal]
  - Colitis [Not Recovered/Not Resolved]
  - Pain in extremity [Not Recovered/Not Resolved]
  - Somnolence [Not Recovered/Not Resolved]
  - Unresponsive to stimuli [Not Recovered/Not Resolved]
  - General physical health deterioration [Not Recovered/Not Resolved]

NARRATIVE: CASE EVENT DATE: 20250217
